FAERS Safety Report 18423040 (Version 2)
Quarter: 2020Q4

REPORT INFORMATION
  Report Type: Spontaneous
  Country: US (occurrence: US)
  Receive Date: 20201023
  Receipt Date: 20201029
  Transmission Date: 20210114
  Serious: Yes (Other)
  Sender: FDA-Public Use
  Company Number: US-LUNDBECK-DKLU3022943

PATIENT
  Age: 40 Year
  Sex: Male
  Weight: 79 kg

DRUGS (2)
  1. NORTHERA [Suspect]
     Active Substance: DROXIDOPA
     Indication: ORTHOSTATIC HYPOTENSION
  2. NORTHERA [Suspect]
     Active Substance: DROXIDOPA
     Indication: AUTONOMIC NEUROPATHY
     Route: 048
     Dates: start: 202008, end: 202009

REACTIONS (3)
  - Vision blurred [Recovering/Resolving]
  - Cerebrospinal fluid leakage [Unknown]
  - Migraine [Recovering/Resolving]
